FAERS Safety Report 5576411-8 (Version None)
Quarter: 2007Q4

REPORT INFORMATION
  Report Type: 
  Country: None (occurrence: None)
  Receive Date: 20071130
  Receipt Date: 20070920
  Transmission Date: 20080405
  Serious: No
  Sender: FDA-Public Use
  Company Number: US200709004248

PATIENT
  Age: 56 Year
  Sex: Female
  Weight: 83 kg

DRUGS (14)
  1. BYETTA [Suspect]
     Dosage: 5 UG, 10UG, 2/D SUBCUTANEOUS
     Route: 058
     Dates: start: 20060101, end: 20060101
  2. BYETTA [Suspect]
     Dosage: 5 UG, 10UG, 2/D SUBCUTANEOUS
     Route: 058
     Dates: start: 20060101
  3. GLUCOPHAGE [Concomitant]
  4. METAGLIP (GLIPIZIDE,METFORMIN HYDROCHLORIDE) [Concomitant]
  5. ADVAIR DISKUS 100/50 [Concomitant]
  6. CALAN [Concomitant]
  7. LIPITOR [Concomitant]
  8. ALTACE (RAMIPROL) [Concomitant]
  9. PROVIGIL [Concomitant]
  10. SYNTHROID [Concomitant]
  11. COMBIVENT (IPRATROPIUM BROMIDE, SALBUTAMOL) [Concomitant]
  12. ASPIRIN [Concomitant]
  13. RHINOCORT [Concomitant]
  14. INSULIN [Concomitant]

REACTIONS (14)
  - ANXIETY [None]
  - ASTIGMATISM [None]
  - BLOOD GLUCOSE DECREASED [None]
  - CATARACT [None]
  - CRYING [None]
  - DECREASED APPETITE [None]
  - DYSGEUSIA [None]
  - FEELING ABNORMAL [None]
  - MALAISE [None]
  - NAUSEA [None]
  - NERVOUSNESS [None]
  - STRESS [None]
  - VOMITING [None]
  - WEIGHT DECREASED [None]
